FAERS Safety Report 14631487 (Version 2)
Quarter: 2018Q1

REPORT INFORMATION
  Report Type: Spontaneous
  Country: RS (occurrence: RS)
  Receive Date: 20180313
  Receipt Date: 20180323
  Transmission Date: 20180509
  Serious: Yes (Hospitalization)
  Sender: FDA-Public Use
  Company Number: RS-ABBVIE-18K-303-2287178-00

PATIENT
  Age: 34 Year
  Sex: Male

DRUGS (6)
  1. MELOXICAM. [Concomitant]
     Active Substance: MELOXICAM
     Indication: PRODUCT USED FOR UNKNOWN INDICATION
  2. HUMIRA [Suspect]
     Active Substance: ADALIMUMAB
     Route: 058
     Dates: start: 201205, end: 201501
  3. DIKLOFEN [Concomitant]
     Active Substance: DICLOFENAC
     Indication: PRODUCT USED FOR UNKNOWN INDICATION
     Dosage: 100 MG 2X1
  4. HUMIRA [Suspect]
     Active Substance: ADALIMUMAB
     Indication: ANKYLOSING SPONDYLITIS
     Route: 058
     Dates: end: 201105
  5. HUMIRA [Suspect]
     Active Substance: ADALIMUMAB
     Route: 058
  6. BETAMETASON [Concomitant]
     Indication: PRODUCT USED FOR UNKNOWN INDICATION
     Route: 030

REACTIONS (18)
  - Red blood cell sedimentation rate abnormal [Unknown]
  - Inflammatory pain [Not Recovered/Not Resolved]
  - Red blood cell sedimentation rate abnormal [Unknown]
  - Investigation abnormal [Unknown]
  - Red blood cell abnormality [Unknown]
  - Paracentesis [Unknown]
  - Lymphocytic infiltration [Unknown]
  - Pulmonary function test abnormal [Unknown]
  - C-reactive protein abnormal [Unknown]
  - Haemoglobin abnormal [Unknown]
  - Physical examination abnormal [Unknown]
  - Investigation abnormal [Unknown]
  - Physical examination abnormal [Unknown]
  - Physical examination abnormal [Unknown]
  - Pustular psoriasis [Recovered/Resolved]
  - Iridocyclitis [Not Recovered/Not Resolved]
  - Pulmonary function test abnormal [Unknown]
  - C-reactive protein abnormal [Unknown]

NARRATIVE: CASE EVENT DATE: 2005
